FAERS Safety Report 9172878 (Version 2)
Quarter: 2015Q2

REPORT INFORMATION
  Report Type: Report from Study
  Country: US (occurrence: US)
  Receive Date: 20120911
  Receipt Date: 20150629
  Transmission Date: 20150821
  Serious: Yes (Other)
  Sender: FDA-Public Use
  Company Number: US-ROCHE-1097678

PATIENT
  Age: 51 Year
  Sex: Male

DRUGS (1)
  1. ACTIVASE [Suspect]
     Active Substance: ALTEPLASE
     Indication: ACUTE MYOCARDIAL INFARCTION
     Route: 042

REACTIONS (6)
  - Ventricular extrasystoles [Unknown]
  - Vomiting [Unknown]
  - Skin warm [Unknown]
  - Cough [Unknown]
  - Dry skin [Unknown]
  - Chest pain [Unknown]
